FAERS Safety Report 10724709 (Version 1)
Quarter: 2015Q1

REPORT INFORMATION
  Report Type: Report from Study
  Country: US (occurrence: US)
  Receive Date: 20150120
  Receipt Date: 20150120
  Transmission Date: 20150721
  Serious: Yes (Hospitalization)
  Sender: FDA-Public Use
  Company Number: US-JNJFOC-20150111268

PATIENT
  Age: 78 Year
  Sex: Female
  Weight: 58.51 kg

DRUGS (2)
  1. SIMPONI ARIA [Suspect]
     Active Substance: GOLIMUMAB
     Indication: RHEUMATOID ARTHRITIS
     Route: 042
     Dates: start: 20141117
  2. SIMPONI ARIA [Suspect]
     Active Substance: GOLIMUMAB
     Indication: RHEUMATOID ARTHRITIS
     Route: 042
     Dates: start: 20141016

REACTIONS (8)
  - Dyspnoea [Not Recovered/Not Resolved]
  - Pneumonia [Unknown]
  - Abnormal loss of weight [Unknown]
  - Asthenia [Unknown]
  - Malaise [Unknown]
  - Immune system disorder [Unknown]
  - Influenza [Unknown]
  - Decreased appetite [Unknown]

NARRATIVE: CASE EVENT DATE: 2014
